FAERS Safety Report 14958885 (Version 1)
Quarter: 2018Q2

REPORT INFORMATION
  Report Type: Report from Study
  Country: CA (occurrence: CA)
  Receive Date: 20180531
  Receipt Date: 20180531
  Transmission Date: 20180711
  Serious: Yes (Other)
  Sender: FDA-Public Use
  Company Number: PHHY2014CA143791

PATIENT
  Age: 64 Year
  Sex: Female

DRUGS (7)
  1. GLEEVEC [Suspect]
     Active Substance: IMATINIB MESYLATE
     Indication: GASTROINTESTINAL STROMAL TUMOUR
     Dosage: 400 MG, QD
     Route: 048
     Dates: start: 20141030, end: 20150512
  2. SYNTHROID [Concomitant]
     Active Substance: LEVOTHYROXINE SODIUM
     Indication: PRODUCT USED FOR UNKNOWN INDICATION
     Dosage: UNK
     Route: 065
  3. VITAMIN D [Concomitant]
     Active Substance: CHOLECALCIFEROL
     Indication: PRODUCT USED FOR UNKNOWN INDICATION
     Dosage: UNK
     Route: 065
  4. GLEEVEC [Suspect]
     Active Substance: IMATINIB MESYLATE
     Dosage: 400 MG, QD
     Route: 048
     Dates: start: 20150623, end: 20180516
  5. DIAMICRON [Concomitant]
     Active Substance: GLICLAZIDE
     Indication: PRODUCT USED FOR UNKNOWN INDICATION
     Dosage: UNK
     Route: 065
  6. NOVORAPID [Concomitant]
     Active Substance: INSULIN ASPART
     Indication: PRODUCT USED FOR UNKNOWN INDICATION
     Dosage: UNK
     Route: 065
  7. LEVEMIR [Concomitant]
     Active Substance: INSULIN DETEMIR
     Indication: PRODUCT USED FOR UNKNOWN INDICATION
     Dosage: UNK
     Route: 065

REACTIONS (46)
  - Back pain [Not Recovered/Not Resolved]
  - Chills [Unknown]
  - Feeling cold [Not Recovered/Not Resolved]
  - Increased upper airway secretion [Unknown]
  - Blood iron decreased [Unknown]
  - Muscle spasms [Unknown]
  - Increased appetite [Unknown]
  - Vomiting [Unknown]
  - Haematochezia [Unknown]
  - Panic attack [Unknown]
  - Tooth loss [Unknown]
  - Tachycardia [Unknown]
  - Urinary retention [Recovered/Resolved]
  - Gastrointestinal stromal tumour [Unknown]
  - Tumour pain [Unknown]
  - Renal disorder [Recovering/Resolving]
  - Blood glucose decreased [Unknown]
  - Fatigue [Unknown]
  - Dehydration [Unknown]
  - Abdominal pain upper [Unknown]
  - Drug ineffective [Unknown]
  - Recurrent cancer [Unknown]
  - Tongue discomfort [Unknown]
  - Abdominal discomfort [Unknown]
  - Swelling face [Unknown]
  - Dysgeusia [Unknown]
  - Dry skin [Unknown]
  - Pain in extremity [Not Recovered/Not Resolved]
  - Vein disorder [Unknown]
  - Thyroid disorder [Unknown]
  - Faeces discoloured [Unknown]
  - Urinary incontinence [Recovered/Resolved]
  - Insomnia [Recovering/Resolving]
  - Nausea [Not Recovered/Not Resolved]
  - Sinus disorder [Unknown]
  - Asthenia [Unknown]
  - Gastrooesophageal reflux disease [Unknown]
  - Eye swelling [Recovering/Resolving]
  - Haemorrhage [Unknown]
  - Jaw disorder [Unknown]
  - Gait disturbance [Unknown]
  - Ear pain [Unknown]
  - Depression [Unknown]
  - Anxiety [Unknown]
  - Hypogeusia [Unknown]
  - Oropharyngeal pain [Unknown]

NARRATIVE: CASE EVENT DATE: 20141030
